FAERS Safety Report 18651215 (Version 2)
Quarter: 2020Q4

REPORT INFORMATION
  Report Type: Report from Study
  Country: None (occurrence: CA)
  Receive Date: 20201223
  Receipt Date: 20201224
  Transmission Date: 20210114
  Serious: Yes (Hospitalization)
  Sender: FDA-Public Use
  Company Number: CA-ABBVIE-20K-028-3620617-00

PATIENT
  Sex: Female

DRUGS (1)
  1. HUMIRA [Suspect]
     Active Substance: ADALIMUMAB
     Indication: CROHN^S DISEASE
     Route: 058
     Dates: end: 20200929

REACTIONS (4)
  - Drug ineffective [Not Recovered/Not Resolved]
  - Tachycardia induced cardiomyopathy [Unknown]
  - Atrial fibrillation [Unknown]
  - Dyspnoea [Unknown]
